FAERS Safety Report 9372281 (Version 1)
Quarter: 2013Q2

REPORT INFORMATION
  Report Type: Report from Study
  Country: US (occurrence: US)
  Receive Date: 20130627
  Receipt Date: 20130627
  Transmission Date: 20140414
  Serious: Yes (Other)
  Sender: FDA-Public Use
  Company Number: US-MYLANLABS-2012S1019620

PATIENT
  Age: 54 Year
  Sex: Male

DRUGS (14)
  1. COLACE [Concomitant]
  2. ROZEREM [Concomitant]
  3. HALDOL [Concomitant]
  4. MULTIVITAMINES WITH IRON /02170101/ [Concomitant]
  5. CLOZAPINE TABLETS [Suspect]
     Indication: SCHIZOPHRENIA, PARANOID TYPE
     Route: 048
     Dates: end: 20130129
  6. CLOZAPINE TABLETS [Suspect]
     Indication: SCHIZOPHRENIA, PARANOID TYPE
     Route: 048
     Dates: end: 20130129
  7. TYLENOL [Concomitant]
  8. CLONAZEPAM [Concomitant]
  9. VITAMIN C [Concomitant]
  10. VITAMIN B6 [Concomitant]
  11. DEPAKOTE [Concomitant]
  12. MILK OF MAGNESIA [Concomitant]
  13. HCTZ [Concomitant]
  14. PROPRANOLOL [Concomitant]

REACTIONS (1)
  - Granulocytopenia [Not Recovered/Not Resolved]
